FAERS Safety Report 16823106 (Version 1)
Quarter: 2019Q3

REPORT INFORMATION
  Report Type: Report from Study
  Country: US (occurrence: US)
  Receive Date: 20190918
  Receipt Date: 20190918
  Transmission Date: 20191005
  Serious: Yes (Other)
  Sender: FDA-Public Use
  Company Number: US-SEBELA IRELAND LIMITED-2019SEB00205

PATIENT
  Age: 71 Year
  Sex: Male

DRUGS (5)
  1. HUMIRA [Suspect]
     Active Substance: ADALIMUMAB
     Indication: COLITIS ULCERATIVE
     Dosage: 40 MG, 2X/MONTH (1 IN 2 WEEKS)
     Route: 058
     Dates: start: 2015
  2. HUMIRA [Suspect]
     Active Substance: ADALIMUMAB
     Indication: IRRITABLE BOWEL SYNDROME
  3. AMOXICILLIN. [Suspect]
     Active Substance: AMOXICILLIN
     Dosage: UNK
  4. POTASSIUM [Concomitant]
     Active Substance: POTASSIUM
  5. IMURAN [Suspect]
     Active Substance: AZATHIOPRINE
     Dosage: UNK

REACTIONS (17)
  - Apparent death [Unknown]
  - Upper respiratory tract infection [Unknown]
  - H1N1 influenza [Unknown]
  - Syncope [Unknown]
  - Pain [Unknown]
  - Inner ear disorder [Recovered/Resolved]
  - Sinusitis [Not Recovered/Not Resolved]
  - Lethargy [Unknown]
  - Brain operation [Unknown]
  - Illusion [Recovered/Resolved]
  - Weight decreased [Unknown]
  - Balance disorder [Unknown]
  - Deafness unilateral [Recovering/Resolving]
  - Screaming [Unknown]
  - Diarrhoea [Recovered/Resolved]
  - Dysentery [Recovered/Resolved]
  - Hydrocephalus [Recovered/Resolved]

NARRATIVE: CASE EVENT DATE: 201412
